FAERS Safety Report 16726951 (Version 1)
Quarter: 2019Q3

REPORT INFORMATION
  Report Type: Spontaneous
  Country: US (occurrence: US)
  Receive Date: 20190821
  Receipt Date: 20190821
  Transmission Date: 20191005
  Serious: Yes (Other)
  Sender: FDA-Public Use
  Company Number: US-TEVA-2019-US-1092706

PATIENT
  Sex: Male

DRUGS (1)
  1. COPAXONE [Suspect]
     Active Substance: GLATIRAMER ACETATE
     Indication: MULTIPLE SCLEROSIS
     Dosage: FORM STRENGTH:UNKNOWN
     Route: 058
     Dates: end: 20190807

REACTIONS (6)
  - Cognitive disorder [Unknown]
  - Pain in extremity [Unknown]
  - Hypoaesthesia oral [Unknown]
  - Blindness unilateral [Unknown]
  - Memory impairment [Unknown]
  - Hypoaesthesia [Unknown]
